FAERS Safety Report 25370862 (Version 2)
Quarter: 2025Q3

REPORT INFORMATION
  Report Type: Report from Study
  Country: US (occurrence: US)
  Receive Date: 20250528
  Receipt Date: 20250709
  Transmission Date: 20251020
  Serious: Yes (Other)
  Sender: JOHNSON AND JOHNSON
  Company Number: US-JNJFOC-20250410939

PATIENT
  Age: 60 Year
  Sex: Female

DRUGS (1)
  1. REMICADE [Suspect]
     Active Substance: INFLIXIMAB
     Indication: Colitis ulcerative
     Route: 041
     Dates: start: 202406

REACTIONS (8)
  - Fall [Unknown]
  - Thoracic vertebral fracture [Recovered/Resolved]
  - Quadriplegia [Recovered/Resolved]
  - Pain in extremity [Recovered/Resolved]
  - Diarrhoea [Recovered/Resolved]
  - Feeling abnormal [Unknown]
  - Hypertension [Recovered/Resolved]
  - Heart valve incompetence [Unknown]

NARRATIVE: CASE EVENT DATE: 20240701
